FAERS Safety Report 6600846-5 (Version None)
Quarter: 2010Q1

REPORT INFORMATION
  Report Type: 
  Country: None (occurrence: None)
  Receive Date: 20100223
  Receipt Date: 20100223
  Transmission Date: 20100710
  Serious: Yes (Other)
  Sender: FDA-Public Use
  Company Number: None

PATIENT
  Age: 48 Year
  Sex: Female
  Weight: 47.6 kg

DRUGS (7)
  1. PROGRAF [Suspect]
     Indication: MYASTHENIA GRAVIS
     Dosage: 2 MG, UID/QD, ORAL; 3 MG UID/QD, ORAL
     Route: 048
     Dates: start: 20080228, end: 20080401
  2. PROGRAF [Suspect]
     Indication: MYASTHENIA GRAVIS
     Dosage: 2 MG, UID/QD, ORAL; 3 MG UID/QD, ORAL
     Route: 048
     Dates: start: 20080402, end: 20090427
  3. PROGRAF [Suspect]
     Indication: MYASTHENIA GRAVIS
     Dosage: 5 DF, UNKNOWN/D, ORAL
     Route: 048
     Dates: start: 20090428, end: 20090610
  4. FOSAMAC (ALENDRONATE SODIUM) [Concomitant]
  5. TAKEPRON (LANSOPRAZOLE) ORODISPERSIBLE CR [Concomitant]
  6. PREDNISOLONE TAB [Concomitant]
  7. MYTELASE (AMBENONIUM CHLORIDE) TABLET [Concomitant]

REACTIONS (2)
  - AGEUSIA [None]
  - UTERINE HAEMORRHAGE [None]
